FAERS Safety Report 10010649 (Version 1)
Quarter: 2014Q1

REPORT INFORMATION
  Report Type: Spontaneous
  Country: US (occurrence: None)
  Receive Date: 20140312
  Receipt Date: 20140312
  Transmission Date: 20141002
  Serious: Yes (Other)
  Sender: FDA-Public Use
  Company Number: None

PATIENT
  Age: 67 Year
  Sex: Female

DRUGS (1)
  1. EXJADE 500MG NOVARTIS [Suspect]
     Indication: IRON OVERLOAD
     Route: 048

REACTIONS (1)
  - Diarrhoea [None]
